FAERS Safety Report 14751563 (Version 2)
Quarter: 2018Q3

REPORT INFORMATION
  Report Type: Spontaneous
  Country: CH (occurrence: CH)
  Receive Date: 20180412
  Receipt Date: 20180725
  Transmission Date: 20181010
  Serious: Yes (Other)
  Sender: FDA-Public Use
  Company Number: CH-SA-2018SA104220

PATIENT
  Sex: Female

DRUGS (5)
  1. BETAFERON [Concomitant]
     Active Substance: INTERFERON BETA-1B
  2. LEMTRADA [Suspect]
     Active Substance: ALEMTUZUMAB
     Indication: RELAPSING-REMITTING MULTIPLE SCLEROSIS
     Dosage: UNK UNK,UNK
     Route: 041
     Dates: start: 20171106, end: 20171110
  3. CO AMOXIN [Concomitant]
     Dosage: 1 G, BID
  4. ACYCLOVIR [ACICLOVIR] [Concomitant]
     Active Substance: ACYCLOVIR
     Dosage: 200 MG, BID
  5. ROCEPHIN [Concomitant]
     Active Substance: CEFTRIAXONE SODIUM
     Dosage: 2 G
     Route: 041
     Dates: start: 20171113, end: 20171116

REACTIONS (14)
  - Exposure during pregnancy [Unknown]
  - C-reactive protein increased [Recovered/Resolved]
  - Dizziness [Unknown]
  - Blood creatinine decreased [Unknown]
  - Dyspnoea [Recovered/Resolved]
  - Abortion spontaneous [Unknown]
  - White blood cell count increased [Recovered/Resolved]
  - Cough [Recovered/Resolved]
  - Fatigue [Unknown]
  - Rash [Unknown]
  - Bruxism [Recovering/Resolving]
  - Lymphocyte count decreased [Not Recovered/Not Resolved]
  - Haemoglobin decreased [Not Recovered/Not Resolved]
  - Chest discomfort [Recovered/Resolved]

NARRATIVE: CASE EVENT DATE: 201711
